FAERS Safety Report 5038705-4 (Version None)
Quarter: 2006Q2

REPORT INFORMATION
  Report Type: 
  Country: None (occurrence: None)
  Receive Date: 20060629
  Receipt Date: 20060419
  Transmission Date: 20061013
  Serious: No
  Sender: FDA-Public Use
  Company Number: US-BRISTOL-MYERS SQUIBB COMPANY-13351259

PATIENT
  Age: 56 Year
  Sex: Male
  Weight: 77 kg

DRUGS (3)
  1. REYATAZ [Suspect]
  2. TRAZODONE HCL [Suspect]
  3. SEROQUEL [Concomitant]

REACTIONS (2)
  - DRY MOUTH [None]
  - PALPITATIONS [None]
